FAERS Safety Report 11124811 (Version 1)
Quarter: 2015Q2

REPORT INFORMATION
  Report Type: Spontaneous
  Country: US (occurrence: None)
  Receive Date: 20150519
  Receipt Date: 20150519
  Transmission Date: 20150821
  Serious: Yes (Other)
  Sender: FDA-Public Use
  Company Number: None

PATIENT
  Age: 29 Year
  Sex: Female
  Weight: 38.1 kg

DRUGS (2)
  1. MONTELUKAST [Suspect]
     Active Substance: MONTELUKAST SODIUM
     Indication: ASTHMA
     Dosage: MONTELUKAST 5 MG ONE CHEWABLE ONCE A DAY ORAL
     Route: 048
     Dates: start: 20131209, end: 20150505
  2. SINGULAIR [Suspect]
     Active Substance: MONTELUKAST SODIUM
     Dosage: SINGULAIR 10 MG ONE TABLET ONCE A DAY ORAL
     Route: 048
     Dates: start: 20131205

REACTIONS (3)
  - Aphagia [None]
  - Adverse event [None]
  - Drug ineffective [None]

NARRATIVE: CASE EVENT DATE: 20150505
